FAERS Safety Report 9413802 (Version 1)
Quarter: 2013Q3

REPORT INFORMATION
  Report Type: Spontaneous
  Country: AU (occurrence: AU)
  Receive Date: 20130723
  Receipt Date: 20130723
  Transmission Date: 20140515
  Serious: Yes (Hospitalization)
  Sender: FDA-Public Use
  Company Number: AU-JNJFOC-20130713439

PATIENT
  Age: 35 Year
  Sex: Female
  Weight: 70.7 kg

DRUGS (6)
  1. PARACETAMOL [Suspect]
     Indication: HEADACHE
     Route: 065
  2. PARACETAMOL [Suspect]
     Indication: HEADACHE
     Route: 065
     Dates: start: 20130219, end: 20130226
  3. PARACETAMOL [Suspect]
     Indication: PAIN
     Route: 065
     Dates: start: 20130219, end: 20130226
  4. PARACETAMOL [Suspect]
     Indication: PAIN
     Route: 065
  5. BORTEZOMIB [Concomitant]
     Route: 065
     Dates: start: 20130328
  6. BORTEZOMIB [Concomitant]
     Route: 065
     Dates: start: 20130204

REACTIONS (1)
  - Lower respiratory tract infection [Not Recovered/Not Resolved]
